FAERS Safety Report 17187769 (Version 5)
Quarter: 2023Q1

REPORT INFORMATION
  Report Type: Report from Study
  Country: JP (occurrence: JP)
  Receive Date: 20191221
  Receipt Date: 20230111
  Transmission Date: 20230417
  Serious: Yes (Death, Other)
  Sender: FDA-Public Use
  Company Number: JP-CELLTRION INC.-2019JP019172

PATIENT

DRUGS (14)
  1. TRASTUZUMAB [Suspect]
     Active Substance: TRASTUZUMAB
     Indication: Gastric cancer
     Dosage: 400 MILLIGRAM, QD
     Route: 041
     Dates: start: 20181105, end: 20181105
  2. TRASTUZUMAB [Suspect]
     Active Substance: TRASTUZUMAB
     Dosage: 250 MG/BODY/DAY
     Route: 042
     Dates: start: 20181203, end: 20181203
  3. TRASTUZUMAB [Suspect]
     Active Substance: TRASTUZUMAB
     Dosage: 250 MG/BODY/DAY
     Route: 042
     Dates: start: 20181225, end: 20181225
  4. TRASTUZUMAB [Suspect]
     Active Substance: TRASTUZUMAB
     Dosage: 250 MG/BODY/DAY
     Route: 042
     Dates: start: 20190116, end: 20190116
  5. TRASTUZUMAB [Suspect]
     Active Substance: TRASTUZUMAB
     Dosage: 250 MG/BODY/DAY
     Route: 041
     Dates: start: 20190206, end: 20190206
  6. TRASTUZUMAB [Suspect]
     Active Substance: TRASTUZUMAB
     Dosage: 250 MILLIGRAM, QD
     Route: 041
     Dates: start: 20190227, end: 20190227
  7. NEXIUM I.V. [Concomitant]
     Active Substance: ESOMEPRAZOLE SODIUM
     Indication: Gastric ulcer
     Dosage: UNK
     Dates: end: 20190325
  8. NEXIUM I.V. [Concomitant]
     Active Substance: ESOMEPRAZOLE SODIUM
     Indication: Oesophagitis ulcerative
  9. MOSAPRIDE CITRATE [Concomitant]
     Active Substance: MOSAPRIDE CITRATE
     Indication: Gastritis
     Dosage: UNK
     Dates: end: 20190325
  10. LASIX [Concomitant]
     Active Substance: FUROSEMIDE
     Indication: Hypertension
     Dosage: UNK
     Dates: end: 20190325
  11. LASIX [Concomitant]
     Active Substance: FUROSEMIDE
     Indication: Oedema due to hepatic disease
  12. SODIUM PICOSULFATE [Concomitant]
     Active Substance: SODIUM PICOSULFATE
     Indication: Constipation
     Dosage: UNK
     Dates: end: 20190325
  13. OXALIPLATIN [Concomitant]
     Active Substance: OXALIPLATIN
     Indication: Gastric cancer
     Dosage: UNK
     Dates: start: 20181115
  14. GIMERACIL\OTERACIL\TEGAFUR [Concomitant]
     Active Substance: GIMERACIL\OTERACIL\TEGAFUR
     Indication: Gastric cancer
     Dosage: UNK
     Dates: start: 20181105, end: 20181110

REACTIONS (5)
  - Gastric cancer stage IV [Fatal]
  - Haematotoxicity [Fatal]
  - Liver disorder [Fatal]
  - Haematotoxicity [Recovered/Resolved]
  - Underdose [Unknown]

NARRATIVE: CASE EVENT DATE: 20181123
